FAERS Safety Report 4695526-X (Version None)
Quarter: 2005Q2

REPORT INFORMATION
  Report Type: 
  Country: None (occurrence: None)
  Receive Date: 20050620
  Receipt Date: 20050620
  Transmission Date: 20051028
  Serious: No
  Sender: FDA-Public Use
  Company Number: None

PATIENT
  Age: 45 Year
  Sex: Male
  Weight: 109 kg

DRUGS (1)
  1. ETOMIDATE [Suspect]
     Indication: LIGHT ANAESTHESIA
     Dosage: 20 MG     ONCE   INTRAVENOU
     Route: 042
     Dates: start: 20050615, end: 20050615

REACTIONS (3)
  - AGITATION [None]
  - POST PROCEDURAL COMPLICATION [None]
  - TREMOR [None]
